FAERS Safety Report 11047551 (Version 1)
Quarter: 2015Q2

REPORT INFORMATION
  Report Type: Report from Study
  Country: US (occurrence: US)
  Receive Date: 20150420
  Receipt Date: 20150420
  Transmission Date: 20150821
  Serious: No
  Sender: FDA-Public Use
  Company Number: US-ABBVIE-15P-163-1346913-00

PATIENT
  Age: 11 Year
  Sex: Male

DRUGS (2)
  1. LUPRON DEPOT-PED [Suspect]
     Active Substance: LEUPROLIDE ACETATE
     Indication: OFF LABEL USE
     Route: 050
  2. LUPRON DEPOT-PED [Suspect]
     Active Substance: LEUPROLIDE ACETATE
     Indication: BODY HEIGHT BELOW NORMAL

REACTIONS (2)
  - Drug dose omission [Unknown]
  - Product reconstitution issue [Unknown]

NARRATIVE: CASE EVENT DATE: 20150211
